FAERS Safety Report 13595249 (Version 7)
Quarter: 2019Q3

REPORT INFORMATION
  Report Type: Spontaneous
  Country: US (occurrence: US)
  Receive Date: 20170531
  Receipt Date: 20190925
  Transmission Date: 20191004
  Serious: Yes (Hospitalization, Other)
  Sender: FDA-Public Use
  Company Number: US-BIOGEN-2015BI123852

PATIENT
  Sex: Male

DRUGS (2)
  1. AVONEX [Suspect]
     Active Substance: INTERFERON BETA-1A
     Indication: MULTIPLE SCLEROSIS
     Route: 050
     Dates: start: 19970901
  2. AVONEX [Suspect]
     Active Substance: INTERFERON BETA-1A
     Route: 050
     Dates: start: 20181105

REACTIONS (6)
  - Malaise [Unknown]
  - Colon cancer [Recovered/Resolved]
  - Testis cancer [Unknown]
  - Prostate cancer [Unknown]
  - Tumour rupture [Unknown]
  - Ileus [Unknown]

NARRATIVE: CASE EVENT DATE: 2015
